FAERS Safety Report 13634931 (Version 1)
Quarter: 2017Q2

REPORT INFORMATION
  Report Type: Spontaneous
  Country: US (occurrence: US)
  Receive Date: 20170531
  Receipt Date: 20170531
  Transmission Date: 20170830
  Serious: No
  Sender: FDA-Public Use
  Company Number: US-ASTELLAS-1670481

PATIENT
  Sex: Female

DRUGS (5)
  1. TARCEVA [Suspect]
     Active Substance: ERLOTINIB HYDROCHLORIDE
     Indication: LUNG NEOPLASM MALIGNANT
     Route: 048
     Dates: start: 20151104
  2. ROPINIROLE. [Concomitant]
     Active Substance: ROPINIROLE
  3. TARCEVA [Suspect]
     Active Substance: ERLOTINIB HYDROCHLORIDE
     Route: 048
     Dates: start: 20151223
  4. TARCEVA [Suspect]
     Active Substance: ERLOTINIB HYDROCHLORIDE
     Route: 048
  5. LISINOPRIL. [Concomitant]
     Active Substance: LISINOPRIL

REACTIONS (18)
  - Back pain [Unknown]
  - Weight decreased [Unknown]
  - Dysgeusia [Unknown]
  - Abdominal pain upper [Unknown]
  - Stomatitis [Unknown]
  - Peripheral swelling [Unknown]
  - Nausea [Unknown]
  - Pain [Unknown]
  - Fatigue [Unknown]
  - Cough [Unknown]
  - Diarrhoea [Unknown]
  - Swelling [Unknown]
  - Muscle spasms [Unknown]
  - Insomnia [Unknown]
  - Pain in extremity [Unknown]
  - Arthralgia [Unknown]
  - Headache [Unknown]
  - Dizziness [Unknown]
